FAERS Safety Report 9822812 (Version 2)
Quarter: 2014Q1

REPORT INFORMATION
  Report Type: Spontaneous
  Country: US (occurrence: US)
  Receive Date: 20140116
  Receipt Date: 20140131
  Transmission Date: 20141002
  Serious: Yes (Hospitalization)
  Sender: FDA-Public Use
  Company Number: US-B.I. PHARMACEUTICALS,INC./RIDGEFIELD-2014-BI-01672BP

PATIENT
  Sex: Male
  Weight: 113.4 kg

DRUGS (10)
  1. PRADAXA [Suspect]
     Route: 048
     Dates: start: 20111031, end: 20121110
  2. TYLENOL WITH CODEINE [Concomitant]
     Indication: PAIN
     Route: 048
  3. LIPITOR [Concomitant]
     Dosage: 20 MG
     Route: 048
  4. AVAPRO [Concomitant]
     Dosage: 300 MG
     Route: 048
  5. CARVEDILOL [Concomitant]
     Dosage: 12.5 MG
     Route: 048
  6. NIFEDIPINE [Concomitant]
     Dosage: 60 MG
     Route: 048
  7. FUROSEMIDE [Concomitant]
     Dosage: 40 MG
     Route: 048
  8. METOLAZONE [Concomitant]
     Dosage: 2.5 MG
     Route: 048
  9. GLYBURIDE [Concomitant]
     Dosage: 5 MG
     Route: 048
  10. ZYLOPRIM [Concomitant]
     Dosage: 100 MG
     Route: 048

REACTIONS (3)
  - Gastrointestinal haemorrhage [Unknown]
  - Renal failure acute [Unknown]
  - Haemorrhagic anaemia [Unknown]
